FAERS Safety Report 24756248 (Version 1)
Quarter: 2024Q4

REPORT INFORMATION
  Report Type: Spontaneous
  Country: FR (occurrence: FR)
  Receive Date: 20241220
  Receipt Date: 20241220
  Transmission Date: 20250115
  Serious: Yes (Other)
  Sender: AUROBINDO
  Company Number: FR-AFSSAPS-BR2024000948

PATIENT
  Age: 13 Year
  Sex: Male

DRUGS (1)
  1. ISOTRETINOIN [Suspect]
     Active Substance: ISOTRETINOIN
     Indication: Acne
     Dosage: 30 MILLIGRAM, ONCE A DAY
     Route: 048
     Dates: start: 20231204

REACTIONS (1)
  - Osteoma [Not Recovered/Not Resolved]

NARRATIVE: CASE EVENT DATE: 20240201
